FAERS Safety Report 6706364-8 (Version None)
Quarter: 2010Q2

REPORT INFORMATION
  Report Type: 
  Country: None (occurrence: None)
  Receive Date: 20100503
  Receipt Date: 20100421
  Transmission Date: 20101027
  Serious: Yes (Hospitalization)
  Sender: FDA-Public Use
  Company Number: ES-ELI_LILLY_AND_COMPANY-ES201004005918

PATIENT
  Sex: Female
  Weight: 56 kg

DRUGS (2)
  1. FORTEO [Suspect]
     Indication: OSTEOPOROSIS
     Dosage: 20 UG, DAILY (1/D)
     Route: 058
     Dates: start: 20100208
  2. DENUBIL [Concomitant]
     Indication: DECREASED APPETITE
     Dosage: UNK, DAILY (1/D)
     Route: 048
     Dates: start: 20100330

REACTIONS (4)
  - DEATH OF RELATIVE [None]
  - DECREASED APPETITE [None]
  - INJECTION SITE PAIN [None]
  - WEIGHT DECREASED [None]
